FAERS Safety Report 16323921 (Version 2)
Quarter: 2019Q2

REPORT INFORMATION
  Report Type: Report from Study
  Country: US (occurrence: US)
  Receive Date: 20190517
  Receipt Date: 20190528
  Transmission Date: 20190711
  Serious: No
  Sender: FDA-Public Use
  Company Number: US-SHIRE-US201916037

PATIENT
  Age: 80 Year
  Sex: Female

DRUGS (2)
  1. XIIDRA [Suspect]
     Active Substance: LIFITEGRAST
     Dosage: UNK
     Route: 047
  2. XIIDRA [Suspect]
     Active Substance: LIFITEGRAST
     Indication: PRODUCT USED FOR UNKNOWN INDICATION
     Dosage: UNK
     Route: 047
     Dates: start: 20190508, end: 20190514

REACTIONS (5)
  - Condition aggravated [Unknown]
  - Vision blurred [Unknown]
  - Instillation site reaction [Unknown]
  - Visual impairment [Recovered/Resolved]
  - Instillation site pain [Unknown]

NARRATIVE: CASE EVENT DATE: 20190508
